FAERS Safety Report 4283818-8 (Version None)
Quarter: 2004Q1

REPORT INFORMATION
  Report Type: 
  Country: None (occurrence: None)
  Receive Date: 20040130
  Receipt Date: 20040121
  Transmission Date: 20041129
  Serious: Yes (Hospitalization, Disabling, Other)
  Sender: FDA-Public Use
  Company Number: US064307

PATIENT
  Sex: Female

DRUGS (1)
  1. EPOGEN [Suspect]
     Indication: DIALYSIS
     Dosage: 10000 U, 3 IN 1 WEEKS
     Dates: start: 20031101, end: 20040101

REACTIONS (9)
  - ABASIA [None]
  - ARTHRALGIA [None]
  - CHEST PAIN [None]
  - DYSPHAGIA [None]
  - HAEMOGLOBIN DECREASED [None]
  - INFLAMMATION [None]
  - JAW DISORDER [None]
  - MUSCLE CONTRACTURE [None]
  - OEDEMA PERIPHERAL [None]
